FAERS Safety Report 13013065 (Version 1)
Quarter: 2016Q4

REPORT INFORMATION
  Report Type: Spontaneous
  Country: US (occurrence: US)
  Receive Date: 20161209
  Receipt Date: 20161209
  Transmission Date: 20170207
  Serious: Yes (Hospitalization)
  Sender: FDA-Public Use
  Company Number: None

PATIENT
  Age: 56 Year
  Sex: Female
  Weight: 53.5 kg

DRUGS (3)
  1. GEMCITABINE [Suspect]
     Active Substance: GEMCITABINE\GEMCITABINE HYDROCHLORIDE
     Indication: PANCREATIC CARCINOMA
     Dosage: GEMCITABINE NAB-PACLITAXEL - IV - 28 DAY CYCLE
     Route: 042
     Dates: start: 20160330, end: 20160511
  2. 5-FU [Suspect]
     Active Substance: FLUOROURACIL
     Indication: PANCREATIC CARCINOMA
     Dosage: CHEMORADIATION 5-FU - 5DAY/WEEK - EXTERNAL BEAM IV PUMP
     Dates: start: 20160607, end: 20160715
  3. NAB-PACLITAXEL [Suspect]
     Active Substance: PACLITAXEL
     Indication: PANCREATIC CARCINOMA
     Dosage: 28 DAY CYCLE
     Route: 042
     Dates: start: 20160330, end: 20160511

REACTIONS (6)
  - Abdominal pain [None]
  - Haematochezia [None]
  - Haematemesis [None]
  - Erythema [None]
  - Spleen disorder [None]
  - Rectal haemorrhage [None]

NARRATIVE: CASE EVENT DATE: 20161123
